FAERS Safety Report 5084150-5 (Version None)
Quarter: 2006Q3

REPORT INFORMATION
  Report Type: 
  Country: None (occurrence: None)
  Receive Date: 20060821
  Receipt Date: 20060810
  Transmission Date: 20061208
  Serious: Yes (Hospitalization)
  Sender: FDA-Public Use
  Company Number: CN-BAYER-200613522GDS

PATIENT
  Age: 74 Year
  Sex: Male

DRUGS (3)
  1. 8-HOUR BAYER [Suspect]
     Indication: CEREBROVASCULAR DISORDER
     Dosage: TOTAL DAILY DOSE: 100 MG  UNIT DOSE: 100 MG
     Route: 048
     Dates: start: 20060507, end: 20060717
  2. YANG XIE QING NAO KE LI (A CHINESE TRADITIONAL DRUG) [Concomitant]
     Indication: CEREBROVASCULAR DISORDER
     Route: 048
     Dates: start: 20060507
  3. COMPOSITE CHLORZOXAZONE [Concomitant]
     Indication: CEREBROVASCULAR DISORDER
     Route: 048
     Dates: start: 20060507

REACTIONS (9)
  - ANOREXIA [None]
  - ASTHENIA [None]
  - HEPATIC FUNCTION ABNORMAL [None]
  - HEPATITIS [None]
  - HERPES SIMPLEX [None]
  - LIVER DISORDER [None]
  - PAIN [None]
  - PYREXIA [None]
  - SOMNOLENCE [None]
